FAERS Safety Report 5986413-5 (Version None)
Quarter: 2008Q4

REPORT INFORMATION
  Report Type: 
  Country: None (occurrence: None)
  Receive Date: 20081203
  Receipt Date: 20081117
  Transmission Date: 20090506
  Serious: Yes (Other)
  Sender: FDA-Public Use
  Company Number: JP-2008-1098

PATIENT
  Age: 70 Year
  Sex: Female

DRUGS (7)
  1. NAVELBINE [Suspect]
     Indication: BREAST CANCER RECURRENT
     Dates: start: 20071204, end: 20071204
  2. NAVELBINE [Suspect]
     Indication: BREAST CANCER RECURRENT
     Dates: start: 20071218, end: 20071218
  3. NAVELBINE [Suspect]
     Indication: BREAST CANCER RECURRENT
     Dates: start: 20071225, end: 20071225
  4. NAVELBINE [Suspect]
     Indication: BREAST CANCER RECURRENT
     Dates: start: 20080109, end: 20080109
  5. NAVELBINE [Suspect]
     Indication: BREAST CANCER RECURRENT
     Dates: start: 20080116, end: 20080116
  6. NAVELBINE [Suspect]
     Indication: BREAST CANCER RECURRENT
     Dates: start: 20080130, end: 20080130
  7. NAVELBINE [Suspect]
     Indication: BREAST CANCER RECURRENT
     Dates: start: 20080206, end: 20080206

REACTIONS (9)
  - BLOOD ALBUMIN DECREASED [None]
  - BREAST CANCER RECURRENT [None]
  - CONDITION AGGRAVATED [None]
  - HAEMATOCRIT DECREASED [None]
  - LEUKOPENIA [None]
  - NAUSEA [None]
  - NEOPLASM [None]
  - NEUTROPENIA [None]
  - PROTEIN TOTAL DECREASED [None]
